FAERS Safety Report 8334752-5 (Version None)
Quarter: 2012Q2

REPORT INFORMATION
  Report Type: 
  Country: None (occurrence: None)
  Receive Date: 20120503
  Receipt Date: 20120425
  Transmission Date: 20120825
  Serious: Yes (Other)
  Sender: FDA-Public Use
  Company Number: US-BAYER-2012-041533

PATIENT
  Age: 83 Year
  Sex: Female
  Weight: 64.399 kg

DRUGS (8)
  1. NAPROXEN SODIUM [Suspect]
     Dosage: 1 DF, PRN
     Route: 048
     Dates: end: 20111201
  2. VITAMIN D [Concomitant]
  3. ACTOS [Concomitant]
  4. OMEGA RED D3 [Concomitant]
     Indication: ARTHRALGIA
  5. PRIMIDONE [Concomitant]
  6. CITRACAL [Concomitant]
     Dosage: UNK
     Route: 048
  7. GLUCATROL XL [Concomitant]
  8. METFORMIN HCL [Concomitant]

REACTIONS (1)
  - RENAL IMPAIRMENT [None]
